FAERS Safety Report 14946469 (Version 2)
Quarter: 2018Q2

REPORT INFORMATION
  Report Type: Spontaneous
  Country: US (occurrence: US)
  Receive Date: 20180529
  Receipt Date: 20180530
  Transmission Date: 20180711
  Serious: Yes (Hospitalization, Disabling)
  Sender: FDA-Public Use
  Company Number: US-JNJFOC-20180536472

PATIENT
  Age: 56 Year
  Sex: Female

DRUGS (1)
  1. INVOKANA [Suspect]
     Active Substance: CANAGLIFLOZIN
     Indication: PRODUCT USED FOR UNKNOWN INDICATION
     Route: 048
     Dates: start: 20161111

REACTIONS (4)
  - Osteomyelitis [Unknown]
  - Neuropathic arthropathy [Unknown]
  - Impaired healing [Unknown]
  - Leg amputation [Unknown]

NARRATIVE: CASE EVENT DATE: 20171002
